FAERS Safety Report 19213288 (Version 7)
Quarter: 2022Q3

REPORT INFORMATION
  Report Type: Report from Study
  Country: BR (occurrence: BR)
  Receive Date: 20210504
  Receipt Date: 20220808
  Transmission Date: 20221027
  Serious: Yes (Other)
  Sender: FDA-Public Use
  Company Number: NVSC2021BR028449

PATIENT
  Age: 54 Year
  Sex: Male
  Weight: 84 kg

DRUGS (11)
  1. COSENTYX [Suspect]
     Active Substance: SECUKINUMAB
     Indication: Psoriatic arthropathy
     Dosage: 300 MG, QMO
     Route: 058
     Dates: start: 20181123
  2. COSENTYX [Suspect]
     Active Substance: SECUKINUMAB
     Dosage: 300 MG, QMO
     Route: 065
     Dates: start: 20210108
  3. COSENTYX [Suspect]
     Active Substance: SECUKINUMAB
     Dosage: 300 MG, QMO (LAST APPLICATION)
     Route: 058
     Dates: start: 20210408
  4. COSENTYX [Suspect]
     Active Substance: SECUKINUMAB
     Dosage: 2 DOSAGE FORM, (2 PENS OF 150 MG)
     Route: 058
     Dates: end: 20220416
  5. ACETAMINOPHEN [Concomitant]
     Active Substance: ACETAMINOPHEN
     Indication: Headache
     Dosage: 1 DOSAGE FORM, TID
     Route: 048
     Dates: start: 202103, end: 202103
  6. DIPYRONE [Concomitant]
     Active Substance: DIPYRONE
     Indication: Headache
     Dosage: 1 DOSAGE FORM, TID
     Route: 048
     Dates: start: 202103, end: 202103
  7. METHOTREXATE SODIUM [Concomitant]
     Active Substance: METHOTREXATE SODIUM
     Indication: Product used for unknown indication
     Dosage: UNK UNK, QW
     Route: 065
     Dates: start: 20210311
  8. FOLIC ACID [Concomitant]
     Active Substance: FOLIC ACID
     Indication: Product used for unknown indication
     Dosage: UNK UNK, QW
     Route: 065
  9. PURAN [Concomitant]
     Active Substance: LEVOTHYROXINE SODIUM
     Indication: Hypothyroidism
     Dosage: 1 DOSAGE FORM, QD (MORE THAN 10 YEARS)
     Route: 048
  10. GOLIMUMAB [Concomitant]
     Active Substance: GOLIMUMAB
     Indication: Product used for unknown indication
     Dosage: 1 DOSAGE FORM (50)
     Route: 065
  11. PROPRANOLOL [Concomitant]
     Active Substance: PROPRANOLOL HYDROCHLORIDE
     Indication: Hypertension
     Dosage: 2 DOSAGE FORM, BID
     Route: 048
     Dates: start: 2000

REACTIONS (55)
  - COVID-19 [Recovered/Resolved]
  - Oropharyngeal pain [Recovered/Resolved]
  - Pharyngeal paraesthesia [Recovered/Resolved]
  - Pharyngeal inflammation [Recovered/Resolved]
  - Injection site pain [Recovered/Resolved]
  - Decreased appetite [Unknown]
  - Pain [Recovered/Resolved]
  - Headache [Not Recovered/Not Resolved]
  - Neck pain [Recovered/Resolved]
  - Hypoaesthesia [Not Recovered/Not Resolved]
  - Hyperhidrosis [Recovered/Resolved]
  - Spinal pain [Recovered/Resolved]
  - Malaise [Recovered/Resolved]
  - Alopecia [Recovered/Resolved]
  - Anxiety [Not Recovered/Not Resolved]
  - Retching [Recovered/Resolved]
  - Weight decreased [Recovered/Resolved]
  - Hyperhidrosis [Recovered/Resolved]
  - Alopecia [Not Recovered/Not Resolved]
  - Neuralgia [Not Recovered/Not Resolved]
  - Peripheral swelling [Not Recovered/Not Resolved]
  - Pain in extremity [Unknown]
  - Dyspepsia [Recovered/Resolved]
  - Back pain [Recovered/Resolved]
  - Skin exfoliation [Recovered/Resolved]
  - Arthritis [Unknown]
  - Skin disorder [Recovering/Resolving]
  - Pruritus [Not Recovered/Not Resolved]
  - Gait disturbance [Unknown]
  - Psoriasis [Recovered/Resolved]
  - Psoriasis [Not Recovered/Not Resolved]
  - Arthralgia [Unknown]
  - Hepatic steatosis [Not Recovered/Not Resolved]
  - Skin hypertrophy [Not Recovered/Not Resolved]
  - Head injury [Not Recovered/Not Resolved]
  - Heart rate increased [Recovering/Resolving]
  - Intervertebral disc protrusion [Unknown]
  - Abdominal pain upper [Recovered/Resolved]
  - Eye irritation [Recovering/Resolving]
  - Scab [Not Recovered/Not Resolved]
  - Erythema [Not Recovered/Not Resolved]
  - Blood testosterone decreased [Recovered/Resolved]
  - Fatigue [Unknown]
  - Dry throat [Recovered/Resolved]
  - Anosmia [Recovered/Resolved]
  - Malaise [Recovered/Resolved]
  - Spinal deformity [Unknown]
  - Degenerative bone disease [Unknown]
  - Oxygen saturation abnormal [Unknown]
  - Eye swelling [Recovering/Resolving]
  - Nasal pruritus [Not Recovered/Not Resolved]
  - Dizziness [Recovered/Resolved]
  - Rhinitis [Unknown]
  - Liver disorder [Unknown]
  - Drug ineffective [Not Recovered/Not Resolved]

NARRATIVE: CASE EVENT DATE: 20190701
